FAERS Safety Report 7737086-2 (Version None)
Quarter: 2011Q3

REPORT INFORMATION
  Report Type: 
  Country: None (occurrence: None)
  Receive Date: 20110908
  Receipt Date: 20110901
  Transmission Date: 20111222
  Serious: Yes (Hospitalization, Other)
  Sender: FDA-Public Use
  Company Number: US-JNJFOC-20110609921

PATIENT
  Sex: Female

DRUGS (4)
  1. AVELOX [Suspect]
     Indication: BRONCHIECTASIS
     Route: 048
  2. ZOCOR [Concomitant]
     Indication: BLOOD CHOLESTEROL DECREASED
     Route: 065
     Dates: start: 20080101
  3. LEVAQUIN [Suspect]
     Indication: LUNG INFECTION
     Route: 048
     Dates: start: 19980521, end: 19991229
  4. LEVAQUIN [Suspect]
     Indication: BRONCHIECTASIS
     Route: 065

REACTIONS (4)
  - EPICONDYLITIS [None]
  - ROTATOR CUFF SYNDROME [None]
  - TENDONITIS [None]
  - PLANTAR FASCIITIS [None]
